FAERS Safety Report 20607732 (Version 1)
Quarter: 2022Q1

REPORT INFORMATION
  Report Type: Other
  Country: JP (occurrence: None)
  Receive Date: 20220317
  Receipt Date: 20220317
  Transmission Date: 20220423
  Serious: Yes (Other)
  Sender: FDA-Public Use
  Company Number: JP-ROCHE-3051702

PATIENT
  Age: 52 Year
  Sex: Female

DRUGS (4)
  1. VALGANCICLOVIR [Suspect]
     Active Substance: VALGANCICLOVIR
     Indication: Antiviral prophylaxis
  2. MYCOPHENOLATE MOFETIL [Suspect]
     Active Substance: MYCOPHENOLATE MOFETIL
     Indication: Immunosuppression
     Route: 065
  3. ITRACONAZOLE [Concomitant]
     Active Substance: ITRACONAZOLE
  4. MICAFUNGIN [Concomitant]
     Active Substance: MICAFUNGIN

REACTIONS (3)
  - Renal impairment [Unknown]
  - Aspergillus infection [Unknown]
  - Cytomegalovirus infection [Unknown]
